FAERS Safety Report 9153554 (Version 1)
Quarter: 2013Q1

REPORT INFORMATION
  Report Type: Spontaneous
  Country: US (occurrence: None)
  Receive Date: 20130306
  Receipt Date: 20130306
  Transmission Date: 20140127
  Serious: No
  Sender: FDA-Public Use
  Company Number: None

PATIENT
  Sex: Female
  Weight: 55 kg

DRUGS (20)
  1. BEVACIZUMAB (RHUMAB VEGF) (704865) [Suspect]
  2. CARBOPLATIN [Suspect]
  3. CETUXIMAB [Suspect]
  4. PACLITAXEL [Suspect]
  5. CALCIUM + VITAMIN D [Concomitant]
  6. CRANBERRY SUPPLEMENT [Concomitant]
  7. NORVASC [Concomitant]
  8. OMEGA 3 [Concomitant]
  9. PATANOL [Concomitant]
  10. VITAMIN D [Concomitant]
  11. ATIVAN [Concomitant]
  12. ATROPINE [Concomitant]
  13. COMPAZINE [Concomitant]
  14. CYCLOBENZAPRINE [Concomitant]
  15. DECADRON [Concomitant]
  16. DOXYCYCLINE [Concomitant]
  17. EFFEXOR [Concomitant]
  18. EPINEPHRINE [Concomitant]
  19. LEVOTHYROXINE [Concomitant]
  20. SIMVASTATIN [Concomitant]

REACTIONS (7)
  - Dyspnoea [None]
  - Anxiety [None]
  - Restlessness [None]
  - Mydriasis [None]
  - Pulmonary embolism [None]
  - Lung cancer metastatic [None]
  - Unresponsive to stimuli [None]
